FAERS Safety Report 5937297-2 (Version None)
Quarter: 2008Q4

REPORT INFORMATION
  Report Type: 
  Country: None (occurrence: None)
  Receive Date: 20081031
  Receipt Date: 20081028
  Transmission Date: 20090506
  Serious: Yes (Other)
  Sender: FDA-Public Use
  Company Number: US-ASTRAZENECA-2008UW11360

PATIENT
  Age: 665 Month
  Sex: Male
  Weight: 110.7 kg

DRUGS (1)
  1. SEROQUEL [Suspect]
     Indication: POST-TRAUMATIC STRESS DISORDER
     Route: 048
     Dates: start: 20011101, end: 20070201

REACTIONS (12)
  - BLOOD CHOLESTEROL INCREASED [None]
  - BLOOD TRIGLYCERIDES INCREASED [None]
  - CARDIAC DISORDER [None]
  - CARDIOVASCULAR DISORDER [None]
  - DIABETES MELLITUS [None]
  - HEPATIC STEATOSIS [None]
  - HYPERTENSION [None]
  - ILL-DEFINED DISORDER [None]
  - NEUROPATHY PERIPHERAL [None]
  - PANCREATIC DISORDER [None]
  - PANCREATITIS [None]
  - SPLEEN DISORDER [None]
